FAERS Safety Report 12947871 (Version 1)
Quarter: 2016Q4

REPORT INFORMATION
  Report Type: Spontaneous
  Country: FR (occurrence: FR)
  Receive Date: 20161117
  Receipt Date: 20161117
  Transmission Date: 20170207
  Serious: Yes (Hospitalization, Other)
  Sender: FDA-Public Use
  Company Number: FR-ASTRAZENECA-2016SF19489

PATIENT
  Age: 62 Year
  Sex: Female

DRUGS (13)
  1. INEXIUM [Suspect]
     Active Substance: ESOMEPRAZOLE
     Indication: PROPHYLAXIS
     Route: 048
     Dates: start: 201608
  2. L-ASPARAGINASE [Suspect]
     Active Substance: ASPARAGINASE
     Route: 065
  3. ACLOTINE [Concomitant]
     Active Substance: ANTITHROMBIN III HUMAN
     Dosage: 2000U IF ANTI THROMBIN III LEVEL WAS LOWER THAN 60%
  4. DECAN CERNEVIT [Concomitant]
     Dosage: (VITAMINS B1 AND B6)
  5. VITAMIN K [Concomitant]
     Active Substance: PHYTONADIONE
  6. BACTRIM [Concomitant]
     Active Substance: SULFAMETHOXAZOLE\TRIMETHOPRIM
  7. CALCIUM GLUCONATE. [Concomitant]
     Active Substance: CALCIUM GLUCONATE
  8. CHEMOTHERAPY [Concomitant]
     Active Substance: UNSPECIFIED INGREDIENT
     Dates: start: 20160825
  9. LEDERFOLINE [Concomitant]
     Active Substance: LEUCOVORIN CALCIUM
  10. PRIMPERAN [Concomitant]
     Active Substance: METOCLOPRAMIDE HYDROCHLORIDE
  11. ZARZIO [Concomitant]
     Active Substance: FILGRASTIM
  12. LOXEN [Concomitant]
     Active Substance: NICARDIPINE HYDROCHLORIDE
  13. SMOFKABIVEN [Concomitant]
     Active Substance: UNSPECIFIED INGREDIENT
     Dosage: PARENTERAL NUTRITION

REACTIONS (12)
  - Thrombocytopenia [Unknown]
  - Circulatory collapse [Unknown]
  - Erythema [Unknown]
  - Metabolic encephalopathy [Recovered/Resolved]
  - Air embolism [Unknown]
  - Hyperlactacidaemia [Unknown]
  - Pyrexia [Unknown]
  - Sepsis [Unknown]
  - Subdural haematoma [Unknown]
  - Unresponsive to stimuli [Unknown]
  - Cellulitis [Unknown]
  - Oral herpes [Unknown]

NARRATIVE: CASE EVENT DATE: 20160816
